FAERS Safety Report 4972012-0 (Version None)
Quarter: 2006Q2

REPORT INFORMATION
  Report Type: 
  Country: None (occurrence: None)
  Receive Date: 20060413
  Receipt Date: 20050315
  Transmission Date: 20061013
  Serious: Yes (Hospitalization)
  Sender: FDA-Public Use
  Company Number: US-MERCK-0503USA03217

PATIENT
  Age: 57 Year
  Sex: Female
  Weight: 91 kg

DRUGS (1)
  1. VIOXX [Suspect]
     Indication: ARTHRALGIA
     Route: 048
     Dates: start: 20040101, end: 20040101

REACTIONS (10)
  - CARDIAC FAILURE [None]
  - CHEST PAIN [None]
  - HEPATOCELLULAR DAMAGE [None]
  - MYOCARDIAL INFARCTION [None]
  - OVERDOSE [None]
  - PAIN IN EXTREMITY [None]
  - PALPITATIONS [None]
  - RENAL DISORDER [None]
  - THROMBOSIS [None]
  - ULCER [None]
